FAERS Safety Report 4317658-8 (Version None)
Quarter: 2004Q1

REPORT INFORMATION
  Report Type: 
  Country: None (occurrence: None)
  Receive Date: 20040315
  Receipt Date: 20040303
  Transmission Date: 20041129
  Serious: Yes (Other)
  Sender: FDA-Public Use
  Company Number: WAES 0403USA00304

PATIENT
  Age: 73 Year
  Sex: Female

DRUGS (5)
  1. [THERAPY UNSPECIFIED] [Concomitant]
  2. ZETIA [Suspect]
     Indication: BLOOD CHOLESTEROL INCREASED
     Route: 048
     Dates: start: 20030901
  3. LASIX [Concomitant]
  4. WYTENSIN [Concomitant]
  5. POTASSIUM (UNSPECIFIED) [Concomitant]

REACTIONS (7)
  - ADVERSE EVENT [None]
  - ARTHROPATHY [None]
  - BURNING SENSATION [None]
  - FALL [None]
  - POSTOPERATIVE THROMBOSIS [None]
  - THROMBOSIS [None]
  - URINARY BLADDER HAEMORRHAGE [None]
